FAERS Safety Report 9338771 (Version 1)
Quarter: 2013Q2

REPORT INFORMATION
  Report Type: Spontaneous
  Country: US (occurrence: US)
  Receive Date: 20130610
  Receipt Date: 20130610
  Transmission Date: 20140414
  Serious: Yes (Other)
  Sender: FDA-Public Use
  Company Number: US-OTSUKA-US-2013-11058

PATIENT
  Age: 7 Month
  Sex: Female

DRUGS (8)
  1. BUSULFEX [Suspect]
     Indication: STEM CELL TRANSPLANT
     Route: 065
  2. ANTITHYMOCYTE IMMUNOGLOBULIN [Concomitant]
     Indication: STEM CELL TRANSPLANT
  3. CYCLOPHOSPHAMIDE [Concomitant]
     Indication: STEM CELL TRANSPLANT
  4. METHOTREXATE [Concomitant]
     Indication: NERVOUS SYSTEM DISORDER
     Dosage: 6 MG MILLIGRAM(S), UNK
  5. HYDROCORTISONE [Concomitant]
     Indication: NERVOUS SYSTEM DISORDER
     Dosage: 6 MG MILLIGRAM(S), UNK
  6. DEXAMETHASONE [Concomitant]
     Indication: NERVOUS SYSTEM DISORDER
     Dosage: 10 MG/M2, UNK
     Route: 048
  7. MYCOPHENOLATE MOFETIL [Concomitant]
     Indication: PROPHYLAXIS AGAINST GRAFT VERSUS HOST DISEASE
  8. CYCLOSPORINE [Concomitant]
     Indication: PROPHYLAXIS AGAINST GRAFT VERSUS HOST DISEASE

REACTIONS (10)
  - Nervous system disorder [Unknown]
  - Adrenal insufficiency [Unknown]
  - Irritability [Unknown]
  - Lethargy [Unknown]
  - Photophobia [Unknown]
  - Gliosis [Unknown]
  - Hypertension [Unknown]
  - Body height below normal [Unknown]
  - Osteopenia [Unknown]
  - Pathological fracture [Unknown]
